FAERS Safety Report 7645519-5 (Version None)
Quarter: 2011Q3

REPORT INFORMATION
  Report Type: 
  Country: None (occurrence: None)
  Receive Date: 20110729
  Receipt Date: 20110721
  Transmission Date: 20111222
  Serious: Yes (Death, Hospitalization)
  Sender: FDA-Public Use
  Company Number: US-CELGENEUS-163-21880-11063961

PATIENT
  Sex: Male
  Weight: 72.595 kg

DRUGS (8)
  1. GEMCITABINE [Suspect]
     Dosage: 800 MILLIGRAM/SQ. METER
     Route: 065
  2. GEMCITABINE [Suspect]
     Indication: METASTATIC CARCINOMA OF THE BLADDER
     Dosage: 1000 MILLIGRAM/SQ. METER
     Route: 041
     Dates: start: 20110613
  3. LISINOPRIL [Concomitant]
     Route: 065
  4. ASPIRIN [Concomitant]
     Dosage: 81 MILLIGRAM
     Route: 065
  5. CISPLATIN [Suspect]
     Indication: METASTATIC CARCINOMA OF THE BLADDER
     Dosage: 70 MILLIGRAM/SQ. METER
     Route: 041
     Dates: start: 20110613, end: 20110620
  6. POTASSIUM [Concomitant]
     Dosage: 20 MILLIGRAM
     Route: 065
  7. REVLIMID [Suspect]
     Indication: METASTATIC CARCINOMA OF THE BLADDER
     Dosage: 10 MILLIGRAM
     Route: 048
     Dates: start: 20110613
  8. METOPROLOL TARTRATE [Concomitant]
     Route: 041

REACTIONS (2)
  - METASTATIC CARCINOMA OF THE BLADDER [None]
  - DEHYDRATION [None]
